FAERS Safety Report 21281317 (Version 1)
Quarter: 2022Q3

REPORT INFORMATION
  Report Type: Spontaneous
  Country: JP (occurrence: JP)
  Receive Date: 20220901
  Receipt Date: 20220901
  Transmission Date: 20221027
  Serious: Yes (Life-Threatening)
  Sender: FDA-Public Use
  Company Number: JP-PFIZER INC-202201094586

PATIENT
  Age: 39 Year
  Sex: Female
  Weight: 69.3 kg

DRUGS (1)
  1. METHYLPREDNISOLONE [Suspect]
     Active Substance: METHYLPREDNISOLONE
     Indication: Stevens-Johnson syndrome
     Dosage: 250 MG, DAILY

REACTIONS (2)
  - Lymph gland infection [Unknown]
  - Vasculitis [Unknown]
